FAERS Safety Report 23767114 (Version 1)
Quarter: 2024Q2

REPORT INFORMATION
  Report Type: Report from Study
  Country: US (occurrence: US)
  Receive Date: 20240422
  Receipt Date: 20240422
  Transmission Date: 20240716
  Serious: Yes (Other)
  Sender: FDA-Public Use
  Company Number: US-TAKEDA-2024TUS036871

PATIENT
  Sex: Female

DRUGS (1)
  1. VEDOLIZUMAB [Suspect]
     Active Substance: VEDOLIZUMAB
     Indication: Crohn^s disease
     Dosage: 300 MILLIGRAM
     Route: 042

REACTIONS (7)
  - Rectal haemorrhage [Unknown]
  - Fistula [Unknown]
  - Abscess [Unknown]
  - Enteritis [Unknown]
  - Diarrhoea [Unknown]
  - Pain [Unknown]
  - Ulcer [Unknown]
